FAERS Safety Report 5646586-0 (Version None)
Quarter: 2008Q1

REPORT INFORMATION
  Report Type: 
  Country: None (occurrence: None)
  Receive Date: 20080228
  Receipt Date: 20080228
  Transmission Date: 20080703
  Serious: Yes (Hospitalization)
  Sender: FDA-Public Use
  Company Number: None

PATIENT
  Sex: Female
  Weight: 56.6996 kg

DRUGS (6)
  1. CIPRO [Suspect]
     Indication: URINARY TRACT INFECTION
     Dosage: PO
     Route: 048
     Dates: start: 20070107
  2. AVINZA [Concomitant]
  3. LORTAB [Concomitant]
  4. NEURONTIN [Concomitant]
  5. CYMBALTA [Concomitant]
  6. PRILOSEC [Concomitant]

REACTIONS (5)
  - DYSPHAGIA [None]
  - DYSPNOEA [None]
  - PRURITUS [None]
  - RASH [None]
  - URTICARIA [None]
